FAERS Safety Report 14972206 (Version 1)
Quarter: 2018Q2

REPORT INFORMATION
  Report Type: Report from Study
  Country: US (occurrence: US)
  Receive Date: 20180605
  Receipt Date: 20180605
  Transmission Date: 20180711
  Serious: Yes (Other)
  Sender: FDA-Public Use
  Company Number: US-AMGEN-USASL2018073603

PATIENT
  Sex: Female

DRUGS (1)
  1. REPATHA [Suspect]
     Active Substance: EVOLOCUMAB
     Indication: HYPERLIPIDAEMIA
     Dosage: 140 MG, Q2WK
     Route: 065

REACTIONS (11)
  - Lower respiratory tract infection [Unknown]
  - Dysphonia [Unknown]
  - Rash papular [Unknown]
  - Bladder pain [Recovered/Resolved]
  - Muscle spasms [Recovered/Resolved]
  - Lacrimation increased [Unknown]
  - Peripheral swelling [Unknown]
  - Tremor [Recovered/Resolved]
  - Back pain [Recovered/Resolved]
  - Hyperhidrosis [Unknown]
  - Joint swelling [Unknown]
